FAERS Safety Report 5218692-6 (Version None)
Quarter: 2007Q1

REPORT INFORMATION
  Report Type: 
  Country: None (occurrence: None)
  Receive Date: 20070122
  Receipt Date: 20070108
  Transmission Date: 20070707
  Serious: Yes (Hospitalization)
  Sender: FDA-Public Use
  Company Number: T200700017

PATIENT
  Sex: 0

DRUGS (1)
  1. OPTIRAY 160 [Suspect]
     Indication: DRUG USE FOR UNKNOWN INDICATION
     Dosage: 125 ML, SINGLE, INTRAVENOUS
     Route: 042
     Dates: start: 20070108, end: 20070108

REACTIONS (2)
  - AIR EMBOLISM [None]
  - WRONG TECHNIQUE IN DRUG USAGE PROCESS [None]
